FAERS Safety Report 7692377-9 (Version None)
Quarter: 2011Q3

REPORT INFORMATION
  Report Type: 
  Country: None (occurrence: None)
  Receive Date: 20110818
  Receipt Date: 20101111
  Transmission Date: 20111222
  Serious: Yes (Hospitalization)
  Sender: FDA-Public Use
  Company Number: IT-AMGEN-ITACT2010004186

PATIENT

DRUGS (1)
  1. DARBEPOETIN ALFA [Suspect]
     Indication: RENAL FAILURE CHRONIC
     Dosage: 20 A?G, QWK
     Route: 058
     Dates: start: 20091204

REACTIONS (1)
  - HYPERKALAEMIA [None]
